FAERS Safety Report 20802634 (Version 1)
Quarter: 2022Q2

REPORT INFORMATION
  Report Type: Spontaneous
  Country: US (occurrence: None)
  Receive Date: 20220509
  Receipt Date: 20220509
  Transmission Date: 20220720
  Serious: Yes (Hospitalization)
  Sender: FDA-Public Use
  Company Number: None

PATIENT
  Age: 72 Year
  Sex: Male

DRUGS (1)
  1. NEXAVAR [Suspect]
     Active Substance: SORAFENIB
     Indication: Hepatic cancer
     Dosage: 400MG TWICE DAILY ORAL?
     Route: 048
     Dates: start: 20220420, end: 20220430

REACTIONS (9)
  - Off label use [None]
  - Fatigue [None]
  - Loss of personal independence in daily activities [None]
  - Diarrhoea [None]
  - Blood iron decreased [None]
  - Red blood cell count decreased [None]
  - Nightmare [None]
  - Pulmonary thrombosis [None]
  - Thrombosis [None]

NARRATIVE: CASE EVENT DATE: 20220420
